FAERS Safety Report 13209404 (Version 5)
Quarter: 2019Q2

REPORT INFORMATION
  Report Type: Spontaneous
  Country: US (occurrence: US)
  Receive Date: 20170209
  Receipt Date: 20190509
  Transmission Date: 20190711
  Serious: Yes (Other)
  Sender: FDA-Public Use
  Company Number: US-BAXALTA-2017BLT000918

PATIENT
  Age: 60 Year
  Sex: Male
  Weight: 72.5 kg

DRUGS (9)
  1. OBIZUR [Suspect]
     Active Substance: ANTIHEMOPHILIC FACTOR PORCINE, B-DOMAIN TRUNCATED RECOMBINANT
     Indication: ACQUIRED HAEMOPHILIA WITH ANTI FVIII, XI, OR XIII
     Dosage: 7452 U, UNK (100U/KG)
     Route: 065
     Dates: start: 20161231
  2. OBIZUR [Suspect]
     Active Substance: ANTIHEMOPHILIC FACTOR PORCINE, B-DOMAIN TRUNCATED RECOMBINANT
     Dosage: UNK (50-100U/KG EVERY 12-24 HOURS)
     Route: 042
  3. HYDROXYZINE PAMOATE. [Concomitant]
     Active Substance: HYDROXYZINE PAMOATE
     Indication: PRODUCT USED FOR UNKNOWN INDICATION
     Dosage: UNK
     Route: 048
     Dates: start: 20161227
  4. ATENOLOL. [Concomitant]
     Active Substance: ATENOLOL
     Indication: PRODUCT USED FOR UNKNOWN INDICATION
     Dosage: UNK
     Route: 048
     Dates: start: 20161021
  5. OBIZUR [Suspect]
     Active Substance: ANTIHEMOPHILIC FACTOR PORCINE, B-DOMAIN TRUNCATED RECOMBINANT
     Dosage: UNK (50U/KG EVERY 1-3 DAYS)
     Route: 042
  6. ZOCOR [Concomitant]
     Active Substance: SIMVASTATIN
     Indication: PRODUCT USED FOR UNKNOWN INDICATION
     Dosage: UNK
     Route: 048
     Dates: start: 20161022
  7. ADVATE [Suspect]
     Active Substance: ANTIHEMOPHILIC FACTOR, HUMAN RECOMBINANT
     Dosage: 7581 UNK, UNK
     Route: 065
     Dates: start: 20161230
  8. OBIZUR [Suspect]
     Active Substance: ANTIHEMOPHILIC FACTOR PORCINE, B-DOMAIN TRUNCATED RECOMBINANT
     Dosage: 50U/KG, UNK
     Route: 042
     Dates: start: 20170201
  9. ADVATE [Suspect]
     Active Substance: ANTIHEMOPHILIC FACTOR, HUMAN RECOMBINANT
     Indication: ACQUIRED HAEMOPHILIA WITH ANTI FVIII, XI, OR XIII
     Dosage: 3918 U, UNK (1 DOSE)
     Route: 042
     Dates: start: 20161231, end: 20170201

REACTIONS (4)
  - Anti factor VIII antibody increased [Unknown]
  - Therapy non-responder [Not Recovered/Not Resolved]
  - Atrial fibrillation [Recovered/Resolved]
  - Coagulation factor VIII level decreased [Not Recovered/Not Resolved]

NARRATIVE: CASE EVENT DATE: 20161230
